FAERS Safety Report 16864522 (Version 1)
Quarter: 2019Q3

REPORT INFORMATION
  Report Type: Spontaneous
  Country: ES (occurrence: ES)
  Receive Date: 20190928
  Receipt Date: 20190928
  Transmission Date: 20191005
  Serious: Yes (Other)
  Sender: FDA-Public Use
  Company Number: ES-ACCORD-155956

PATIENT
  Age: 36 Year
  Sex: Male
  Weight: 70 kg

DRUGS (4)
  1. TRAZODONE [Suspect]
     Active Substance: TRAZODONE HYDROCHLORIDE
     Indication: INSOMNIA
     Dosage: 100 MG EFG TABLETS, 30 TABLETS (BLISTER PVC / AL)
     Route: 048
     Dates: start: 20190411
  2. BROMAZEPAM PENS [Concomitant]
     Indication: ANXIETY
     Dosage: 3 MG EFG CAPSULES, 30 CAPSULES
     Route: 048
     Dates: start: 20190411, end: 20190506
  3. ESCITALOPRAM [Interacting]
     Active Substance: ESCITALOPRAM OXALATE
     Indication: DEPRESSION
     Dosage: 10 MG ORODISPERSIBLE TABLETS EFG, 56 TABLETS
     Route: 048
     Dates: start: 20190715, end: 20190716
  4. NALTREXONE ACCORD [Concomitant]
     Active Substance: NALTREXONE HYDROCHLORIDE
     Indication: ALCOHOL ABUSE
     Dosage: 50 MG FILM-COATED TABLETS EFG, 28 TABLETS
     Route: 048
     Dates: start: 20190412, end: 20190430

REACTIONS (2)
  - Generalised tonic-clonic seizure [Recovered/Resolved]
  - Drug interaction [Unknown]

NARRATIVE: CASE EVENT DATE: 20190715
